FAERS Safety Report 5337681-4 (Version None)
Quarter: 2007Q2

REPORT INFORMATION
  Report Type: 
  Country: None (occurrence: None)
  Receive Date: 20070315
  Receipt Date: 20060320
  Transmission Date: 20071010
  Serious: Yes (Other)
  Sender: FDA-Public Use
  Company Number: PHEH2006US03661

PATIENT
  Age: 45 Year
  Sex: Female

DRUGS (3)
  1. TRILEPTAL [Suspect]
     Dosage: 600 MG, TID, ORAL
     Route: 048
     Dates: start: 20050101
  2. EFFEXOR (VENLAFAXINE HDYROCHLORIDE) [Concomitant]
  3. KLONOPIN [Concomitant]

REACTIONS (3)
  - AMNESIA [None]
  - CLUMSINESS [None]
  - EXPRESSIVE LANGUAGE DISORDER [None]
